FAERS Safety Report 17123908 (Version 2)
Quarter: 2019Q4

REPORT INFORMATION
  Report Type: Report from Study
  Country: US (occurrence: US)
  Receive Date: 20191206
  Receipt Date: 20191213
  Transmission Date: 20200122
  Serious: Yes (Death)
  Sender: FDA-Public Use
  Company Number: US-PFIZER INC-2019525680

PATIENT
  Age: 64 Year
  Sex: Female
  Weight: 106 kg

DRUGS (4)
  1. METRONIDAZOLE. [Concomitant]
     Active Substance: METRONIDAZOLE
     Indication: ADVERSE EVENT
     Dosage: 500 MG, 3X/DAY
     Route: 048
     Dates: start: 20190423
  2. LEVOTHYROXINE. [Concomitant]
     Active Substance: LEVOTHYROXINE
     Indication: PROPHYLAXIS
     Dosage: 137 MG, DAILY
     Route: 048
     Dates: start: 20190111
  3. VITAMIN D3 [Concomitant]
     Active Substance: CHOLECALCIFEROL
     Indication: PROPHYLAXIS
     Dosage: 2000 IU, DAILY
     Route: 048
     Dates: start: 20190418
  4. DALTEPARIN SODIUM [Suspect]
     Active Substance: DALTEPARIN SODIUM
     Indication: DEEP VEIN THROMBOSIS
     Dosage: 15000 IU, DAILY
     Route: 058
     Dates: start: 20190419, end: 20190723

REACTIONS (1)
  - Death [Fatal]

NARRATIVE: CASE EVENT DATE: 20190723
